FAERS Safety Report 22232261 (Version 1)
Quarter: 2023Q2

REPORT INFORMATION
  Report Type: Spontaneous
  Country: US (occurrence: None)
  Receive Date: 20230420
  Receipt Date: 20230420
  Transmission Date: 20230722
  Serious: No
  Sender: FDA-Public Use
  Company Number: US-ROCHE-3045962

PATIENT
  Sex: Male

DRUGS (1)
  1. ESBRIET [Suspect]
     Active Substance: PIRFENIDONE
     Indication: Product used for unknown indication
     Dosage: TAKE 3 TABLETS 3TIMES A DAY WITH MEALS
     Route: 048
     Dates: start: 202108

REACTIONS (2)
  - Cough [Unknown]
  - Productive cough [Unknown]
